FAERS Safety Report 5259096-X (Version None)
Quarter: 2007Q1

REPORT INFORMATION
  Report Type: 
  Country: None (occurrence: None)
  Receive Date: 20070305
  Receipt Date: 20070220
  Transmission Date: 20070707
  Serious: Yes (Other)
  Sender: FDA-Public Use
  Company Number: OSCN-GE-0701S-0011

PATIENT
  Sex: Male

DRUGS (3)
  1. OMNISCAN [Suspect]
     Indication: ANGIOPATHY
     Dosage: SEE IMAGE
     Route: 042
     Dates: start: 20050420, end: 20050420
  2. OMNISCAN [Suspect]
     Indication: ANGIOPATHY
     Dosage: SEE IMAGE
     Route: 042
     Dates: start: 20051110, end: 20051110
  3. OMNISCAN [Suspect]
     Indication: ANGIOPATHY
     Dosage: SEE IMAGE
     Route: 042
     Dates: start: 20060809, end: 20060809

REACTIONS (1)
  - NEPHROGENIC FIBROSING DERMOPATHY [None]
